FAERS Safety Report 5177047-3 (Version None)
Quarter: 2006Q4

REPORT INFORMATION
  Report Type: 
  Country: None (occurrence: None)
  Receive Date: 20061218
  Receipt Date: 20061201
  Transmission Date: 20070319
  Serious: Yes (Other)
  Sender: FDA-Public Use
  Company Number: JP-JPN-A200605149

PATIENT
  Age: 70 Year
  Sex: Female
  Weight: 56 kg

DRUGS (9)
  1. PAXIL [Suspect]
     Indication: DEPRESSION
     Dosage: 10MG PER DAY
     Route: 048
     Dates: start: 20060508
  2. TOWARAT L [Suspect]
     Indication: HYPERTENSION
     Dosage: 20MG PER DAY
     Route: 048
  3. MICARDIS [Suspect]
     Indication: HYPERTENSION
     Dosage: 40MG PER DAY
     Route: 048
  4. RESLIN [Concomitant]
     Indication: DEPRESSION
     Dosage: 25MG PER DAY
     Route: 048
  5. AMOBAN [Concomitant]
     Indication: INSOMNIA
     Dosage: 10MG PER DAY
     Route: 048
  6. UNKNOWN MEDICATION [Concomitant]
     Indication: THIRST
     Dosage: 200MG PER DAY
     Route: 048
  7. MANIDIPINE [Concomitant]
     Dosage: 20MG PER DAY
  8. CLONAZEPAM [Concomitant]
     Dosage: .5MG PER DAY
  9. OLANZAPINE [Concomitant]
     Dosage: 10MG PER DAY

REACTIONS (2)
  - BRADYCARDIA [None]
  - LOSS OF CONSCIOUSNESS [None]
